FAERS Safety Report 5860234-6 (Version None)
Quarter: 2008Q3

REPORT INFORMATION
  Report Type: 
  Country: None (occurrence: None)
  Receive Date: 20080827
  Receipt Date: 20080819
  Transmission Date: 20090109
  Serious: Yes (Hospitalization)
  Sender: FDA-Public Use
  Company Number: US-GILEAD-2008-0017845

PATIENT
  Sex: Male
  Weight: 84.1 kg

DRUGS (3)
  1. AMBRISENTAN [Suspect]
     Indication: PULMONARY ARTERIAL HYPERTENSION
     Dates: start: 20070619
  2. AMBRISENTAN [Suspect]
     Dates: start: 20070309, end: 20070618
  3. SILDENAFIL CITRATE [Concomitant]
     Route: 048
     Dates: start: 20071019

REACTIONS (6)
  - DIZZINESS [None]
  - HAEMATOCHEZIA [None]
  - HYPERKALAEMIA [None]
  - HYPERVOLAEMIA [None]
  - PNEUMONIA [None]
  - RIGHT VENTRICULAR FAILURE [None]
